FAERS Safety Report 9320526 (Version 1)
Quarter: 2013Q2

REPORT INFORMATION
  Report Type: Spontaneous
  Country: CA (occurrence: CA)
  Receive Date: 20130531
  Receipt Date: 20130531
  Transmission Date: 20140414
  Serious: Yes (Disabling, Other)
  Sender: FDA-Public Use
  Company Number: CA-MERCK-1305CAN015959

PATIENT
  Age: 31 Year
  Sex: Female

DRUGS (2)
  1. SAPHRIS [Suspect]
     Indication: PRODUCT USED FOR UNKNOWN INDICATION
     Dosage: 10 MG, QD
     Route: 060
  2. SAPHRIS [Suspect]
     Dosage: 5 MG, UNK
     Route: 060

REACTIONS (4)
  - Migraine [Recovered/Resolved]
  - Oesophageal spasm [Recovered/Resolved]
  - Inappropriate schedule of drug administration [Unknown]
  - Underdose [Unknown]
